FAERS Safety Report 6529515-7 (Version None)
Quarter: 2010Q1

REPORT INFORMATION
  Report Type: 
  Country: None (occurrence: None)
  Receive Date: 20100104
  Receipt Date: 20091218
  Transmission Date: 20100710
  Serious: Yes (Hospitalization, Other)
  Sender: FDA-Public Use
  Company Number: JPI-P-009453

PATIENT
  Age: 35 Year
  Sex: Male

DRUGS (11)
  1. LUVOX [Suspect]
     Indication: OBSESSIVE-COMPULSIVE DISORDER
     Dosage: SEE IMAGE
     Route: 048
     Dates: start: 20081210, end: 20081216
  2. LUVOX [Suspect]
     Indication: OBSESSIVE-COMPULSIVE DISORDER
     Dosage: SEE IMAGE
     Route: 048
     Dates: start: 20081217, end: 20090106
  3. LUVOX [Suspect]
     Indication: OBSESSIVE-COMPULSIVE DISORDER
     Dosage: SEE IMAGE
     Route: 048
     Dates: start: 20090107, end: 20090929
  4. LUVOX [Suspect]
     Indication: OBSESSIVE-COMPULSIVE DISORDER
     Dosage: SEE IMAGE
     Route: 048
     Dates: start: 20090930, end: 20091013
  5. LUVOX [Suspect]
     Indication: OBSESSIVE-COMPULSIVE DISORDER
     Dosage: SEE IMAGE
     Route: 048
     Dates: start: 20091014, end: 20091023
  6. MIRTAZAPINE [Suspect]
     Indication: DEPRESSION
     Dosage: 15 MG (15 MG,1 IN 1 D),ORAL; 30 MG (30 MG,1 IN 1 D),ORAL
     Route: 048
     Dates: start: 20090916, end: 20091013
  7. MIRTAZAPINE [Suspect]
     Indication: DEPRESSION
     Dosage: 15 MG (15 MG,1 IN 1 D),ORAL; 30 MG (30 MG,1 IN 1 D),ORAL
     Route: 048
     Dates: start: 20091014, end: 20091022
  8. FLUNITRAZEPAM [Suspect]
     Indication: INSOMNIA
     Dosage: 2 MG (2 MG,1 IN 1 D),ORAL ; 1.5 MG (1.5 MG,1 IN 1 D),ORAL ; 2 MG (2 MG,1 IN 1 D),ORAL
     Route: 048
     Dates: start: 20081210, end: 20090714
  9. FLUNITRAZEPAM [Suspect]
     Indication: INSOMNIA
     Dosage: 2 MG (2 MG,1 IN 1 D),ORAL ; 1.5 MG (1.5 MG,1 IN 1 D),ORAL ; 2 MG (2 MG,1 IN 1 D),ORAL
     Route: 048
     Dates: start: 20090819, end: 20090901
  10. FLUNITRAZEPAM [Suspect]
     Indication: INSOMNIA
     Dosage: 2 MG (2 MG,1 IN 1 D),ORAL ; 1.5 MG (1.5 MG,1 IN 1 D),ORAL ; 2 MG (2 MG,1 IN 1 D),ORAL
     Route: 048
     Dates: start: 20090909, end: 20091022
  11. CLONAZEPAM [Suspect]
     Indication: MOOD SWINGS
     Dosage: 2 MG (2 MG,1 IN 1 D),ORAL
     Route: 048
     Dates: start: 20090527, end: 20091014

REACTIONS (6)
  - CONVULSION [None]
  - DEPRESSION [None]
  - INSOMNIA [None]
  - MOOD SWINGS [None]
  - POTENTIATING DRUG INTERACTION [None]
  - TREMOR [None]
